FAERS Safety Report 11582042 (Version 1)
Quarter: 2015Q4

REPORT INFORMATION
  Report Type: Spontaneous
  Country: US (occurrence: US)
  Receive Date: 20151001
  Receipt Date: 20151001
  Transmission Date: 20160304
  Serious: No
  Sender: FDA-Public Use
  Company Number: US-ROCHE-660031

PATIENT
  Age: 42 Year
  Sex: Male
  Weight: 86.6 kg

DRUGS (2)
  1. RIBAVIRIN. [Suspect]
     Active Substance: RIBAVIRIN
     Indication: HEPATITIS C
     Route: 048
     Dates: start: 20090928, end: 20100104
  2. PEGASYS [Suspect]
     Active Substance: PEGINTERFERON ALFA-2A
     Indication: HEPATITIS C
     Dosage: PRE FILLED SYRINGE
     Route: 058
     Dates: start: 20090928, end: 20100104

REACTIONS (12)
  - Insomnia [Not Recovered/Not Resolved]
  - Diarrhoea [Unknown]
  - Diarrhoea haemorrhagic [Unknown]
  - Abdominal pain upper [Recovered/Resolved]
  - Injection site rash [Not Recovered/Not Resolved]
  - Nausea [Recovering/Resolving]
  - Panic attack [Not Recovered/Not Resolved]
  - Vomiting [Recovered/Resolved]
  - Dyspnoea [Not Recovered/Not Resolved]
  - Headache [Unknown]
  - Agitation [Not Recovered/Not Resolved]
  - White blood cell count decreased [Unknown]

NARRATIVE: CASE EVENT DATE: 20090917
